FAERS Safety Report 4652231-3 (Version None)
Quarter: 2005Q2

REPORT INFORMATION
  Report Type: 
  Country: None (occurrence: None)
  Receive Date: 20050502
  Receipt Date: 20050419
  Transmission Date: 20051028
  Serious: Yes (Other)
  Sender: FDA-Public Use
  Company Number: 2005015298

PATIENT
  Age: 56 Year
  Sex: Female
  Weight: 73 kg

DRUGS (12)
  1. SOMAVERT [Suspect]
     Indication: ACROMEGALY
     Dosage: 10 MG SUBCUTANEOUS
     Route: 058
     Dates: start: 20040401
  2. ATENOLOL [Concomitant]
  3. TRANDOLAPRIL [Concomitant]
  4. CLOPIDOGREL BISULFATE [Concomitant]
  5. LEVOTHYROXINE SODIUM [Concomitant]
  6. ROSUVASTATIN [Concomitant]
  7. RABEPRAZOLE SODIUM [Concomitant]
  8. TRAMADOL HCL [Concomitant]
  9. HYDROXYZINE HYDROCHLORIDE [Concomitant]
  10. ZOLPIDEM TARTRATE [Concomitant]
  11. PIASCLEDINE (PERSEAE OLEUM, SOYA OIL) [Concomitant]
  12. FRUMIL (AMILORIDE HYDROCHLORIDE, FUROSMIDE) [Concomitant]

REACTIONS (3)
  - CEREBROVASCULAR ACCIDENT [None]
  - DEMYELINATION [None]
  - NUCLEAR MAGNETIC RESONANCE IMAGING BRAIN ABNORMAL [None]
